FAERS Safety Report 24903125 (Version 1)
Quarter: 2025Q1

REPORT INFORMATION
  Report Type: Spontaneous
  Country: FR (occurrence: FR)
  Receive Date: 20250130
  Receipt Date: 20250130
  Transmission Date: 20250408
  Serious: Yes (Hospitalization)
  Sender: RANBAXY
  Company Number: FR-SUN PHARMACEUTICAL INDUSTRIES LTD-2025RR-490951

PATIENT
  Age: 80 Year
  Sex: Male
  Weight: 104 kg

DRUGS (5)
  1. REPAGLINIDE [Suspect]
     Active Substance: REPAGLINIDE
     Indication: Diabetes mellitus
     Dosage: 3 MILLIGRAM, DAILY
     Route: 048
  2. GABAPENTIN [Suspect]
     Active Substance: GABAPENTIN
     Indication: Product used for unknown indication
     Dosage: 600 MILLIGRAM, TID
     Route: 048
  3. METFORMIN PAMOATE [Suspect]
     Active Substance: METFORMIN PAMOATE
     Indication: Diabetes mellitus
     Dosage: 2.1 GRAM, DAILY
     Route: 048
  4. FUROSEMIDE [Suspect]
     Active Substance: FUROSEMIDE
     Indication: Product used for unknown indication
     Dosage: 250 MILLIGRAM, DAILY
     Route: 048
  5. ANETHOLTRITHION [Suspect]
     Active Substance: ANETHOLTRITHION
     Indication: Product used for unknown indication
     Dosage: 1 DOSAGE FORM, TID
     Route: 048

REACTIONS (1)
  - Haemolytic anaemia [Not Recovered/Not Resolved]

NARRATIVE: CASE EVENT DATE: 20240319
